FAERS Safety Report 6284796-2 (Version None)
Quarter: 2009Q3

REPORT INFORMATION
  Report Type: 
  Country: None (occurrence: None)
  Receive Date: 20090727
  Receipt Date: 20090716
  Transmission Date: 20100115
  Serious: Yes (Hospitalization, Other)
  Sender: FDA-Public Use
  Company Number: CA-WYE-H08805609

PATIENT
  Sex: Male
  Weight: 80 kg

DRUGS (2)
  1. SORAFENIB [Suspect]
     Indication: METASTATIC RENAL CELL CARCINOMA
     Route: 048
     Dates: start: 20080828, end: 20090326
  2. VENTOLIN [Concomitant]

REACTIONS (2)
  - HYPERGLYCAEMIA [None]
  - RASH [None]
